FAERS Safety Report 10228024 (Version 1)
Quarter: 2014Q2

REPORT INFORMATION
  Report Type: Spontaneous
  Country: US (occurrence: None)
  Receive Date: 20140606
  Receipt Date: 20140606
  Transmission Date: 20141212
  Serious: No
  Sender: FDA-Public Use
  Company Number: TTX201400056

PATIENT
  Sex: Female
  Weight: 76.2 kg

DRUGS (5)
  1. MARQIBO [Suspect]
     Indication: ACUTE LYMPHOCYTIC LEUKAEMIA
     Route: 042
     Dates: start: 20140319
  2. ACYCLOVIR (ACICLOVIR) (ACICLOVIR) [Concomitant]
  3. LORAZEPAM (LORAZEPAM) [Concomitant]
  4. FAMOTIDINE (FAMOTIDINE) [Concomitant]
  5. FLUOXETINE (FLUOXETINE HYDROCHLORIDE) [Concomitant]

REACTIONS (2)
  - Liver function test abnormal [None]
  - Condition aggravated [None]
